FAERS Safety Report 10213813 (Version 1)
Quarter: 2014Q2

REPORT INFORMATION
  Report Type: Spontaneous
  Country: US (occurrence: None)
  Receive Date: 20140529
  Receipt Date: 20140529
  Transmission Date: 20141212
  Serious: Yes (Hospitalization)
  Sender: FDA-Public Use
  Company Number: SYM-2014-21313

PATIENT
  Age: 44 Year
  Sex: Female

DRUGS (2)
  1. XENAZINE (TETRABENAZINE) (25 MILLIGRAM, TABLET) (TETRABENAZINE) [Suspect]
     Indication: HUNTINGTON^S DISEASE
     Route: 048
     Dates: start: 20121025
  2. MYLANTA (MYLANTA/00036701)(MAGNESIUM HYDROXIDE, ALUMINIUM HYDROXIDE GEL, DRIED, SIMETICONE) [Concomitant]

REACTIONS (1)
  - Cellulitis [None]
